FAERS Safety Report 5668395-9 (Version None)
Quarter: 2008Q1

REPORT INFORMATION
  Report Type: 
  Country: None (occurrence: None)
  Receive Date: 20080312
  Receipt Date: 20080225
  Transmission Date: 20080703
  Serious: Yes (Hospitalization)
  Sender: FDA-Public Use
  Company Number: US022818

PATIENT
  Age: 46 Year
  Sex: Female
  Weight: 53.978 kg

DRUGS (12)
  1. ACTIQ [Suspect]
     Indication: HIP ARTHROPLASTY
     Dosage: 800 UG TID BUCCAL
     Route: 002
     Dates: start: 19960201
  2. ACTIQ [Suspect]
     Indication: OSTEONECROSIS
     Dosage: 800 UG TID BUCCAL
     Route: 002
     Dates: start: 19960201
  3. ACTIQ [Suspect]
     Indication: HIP ARTHROPLASTY
     Dosage: 1600 UG TID BUCCAL
     Route: 002
     Dates: end: 19960401
  4. ACTIQ [Suspect]
     Indication: OSTEONECROSIS
     Dosage: 1600 UG TID BUCCAL
     Route: 002
     Dates: end: 19960401
  5. ACTIQ [Suspect]
     Indication: HIP ARTHROPLASTY
     Dosage: 1600 UG TID BUCCAL
     Route: 002
     Dates: start: 20061014, end: 20061021
  6. ACTIQ [Suspect]
     Indication: OSTEONECROSIS
     Dosage: 1600 UG TID BUCCAL
     Route: 002
     Dates: start: 20061014, end: 20061021
  7. VYTORIN [Concomitant]
  8. TRICOR /00499301/ [Concomitant]
  9. ASPIRIN [Concomitant]
  10. ATIVAN [Concomitant]
  11. LACTULOSE [Concomitant]
  12. PREMARIN [Concomitant]

REACTIONS (8)
  - BLADDER PAIN [None]
  - BLOOD DISORDER [None]
  - COLITIS [None]
  - GASTRITIS [None]
  - GASTROINTESTINAL PAIN [None]
  - INADEQUATE ANALGESIA [None]
  - INFECTION [None]
  - URETHRAL PAIN [None]
